FAERS Safety Report 11603902 (Version 1)
Quarter: 2015Q4

REPORT INFORMATION
  Report Type: Spontaneous
  Country: BR (occurrence: BR)
  Receive Date: 20151007
  Receipt Date: 20151007
  Transmission Date: 20160304
  Serious: Yes (Death, Life-Threatening, Hospitalization)
  Sender: FDA-Public Use
  Company Number: BR-FRESENIUS KABI-FK201504722

PATIENT
  Age: 39 Year
  Sex: Female

DRUGS (5)
  1. POLYMYXIN B (MANUFACTURER UNKNOWN) [Suspect]
     Active Substance: POLYMYXIN B
     Route: 065
  2. VORICONAZOLE. [Concomitant]
     Active Substance: VORICONAZOLE
     Indication: BRONCHOPULMONARY ASPERGILLOSIS
     Route: 065
  3. TIGECYCLINE. [Suspect]
     Active Substance: TIGECYCLINE
     Indication: KLEBSIELLA BACTERAEMIA
     Route: 065
  4. TIGECYCLINE. [Suspect]
     Active Substance: TIGECYCLINE
     Route: 065
  5. POLYMYXIN B (MANUFACTURER UNKNOWN) [Suspect]
     Active Substance: POLYMYXIN B
     Indication: KLEBSIELLA BACTERAEMIA
     Route: 065

REACTIONS (2)
  - Drug resistance [Fatal]
  - Nosocomial infection [Unknown]
